FAERS Safety Report 17062110 (Version 18)
Quarter: 2022Q4

REPORT INFORMATION
  Report Type: Spontaneous
  Country: GB (occurrence: GB)
  Receive Date: 20191122
  Receipt Date: 20221007
  Transmission Date: 20230113
  Serious: Yes (Other)
  Sender: FDA-Public Use
  Company Number: GB-SUN PHARMACEUTICAL INDUSTRIES LTD-2019RR-228367

PATIENT
  Sex: Male

DRUGS (16)
  1. RANITIDINE [Suspect]
     Active Substance: RANITIDINE
     Indication: Oesophagitis
     Dosage: UNK ()
     Route: 065
  2. RANITIDINE [Suspect]
     Active Substance: RANITIDINE
     Indication: Barrett^s oesophagus
     Dosage: UNK
     Route: 065
  3. ESOMEPRAZOLE [Suspect]
     Active Substance: ESOMEPRAZOLE
     Indication: Oesophagitis
     Dosage: UNK ()
     Route: 065
  4. ESOMEPRAZOLE [Suspect]
     Active Substance: ESOMEPRAZOLE
     Indication: Barrett^s oesophagus
     Dosage: UNK
     Route: 065
  5. COCODAMOL [Suspect]
     Active Substance: ACETAMINOPHEN\CODEINE PHOSPHATE
     Indication: Product used for unknown indication
     Dosage: CO-CODAMOL (CODEINE PHOSPHATE 30 MG/ PARACETAMOL 500 MG) TABLET
     Route: 048
  6. COCODAMOL [Suspect]
     Active Substance: ACETAMINOPHEN\CODEINE PHOSPHATE
     Dosage: (CODEINE PHOSPHATE 30 MG/ PARACETAMOL 500 MG)
     Route: 065
  7. COCODAMOL [Suspect]
     Active Substance: ACETAMINOPHEN\CODEINE PHOSPHATE
     Dosage: CO-CODAMOL 30/500MG TABLETS, CO-CODAMOL (CODEINE PHOSPHATE 30 MG/ PARACETAMOL 500 MG) TABLET, THERAP
     Route: 048
  8. ARCOXIA [Suspect]
     Active Substance: ETORICOXIB
     Indication: Product used for unknown indication
     Dosage: UNK ()
     Route: 048
  9. ARCOXIA [Suspect]
     Active Substance: ETORICOXIB
     Dosage: UNK ()
     Route: 048
  10. ARCOXIA [Suspect]
     Active Substance: ETORICOXIB
     Dosage: THERAPY START DATE :ASKU, THERAPY END DATE: ASKU
     Route: 048
  11. DOMPERIDONE [Suspect]
     Active Substance: DOMPERIDONE
     Indication: Barrett^s oesophagus
     Dosage: UNK ()
     Route: 065
  12. DOMPERIDONE [Suspect]
     Active Substance: DOMPERIDONE
     Indication: Product used for unknown indication
     Dosage: UNK ()
     Route: 065
  13. DOMPERIDONE [Suspect]
     Active Substance: DOMPERIDONE
     Dosage: THERAPY START DATE :ASKU, THERAPY END DATE: ASKU
     Route: 065
  14. ETORICOXIB [Suspect]
     Active Substance: ETORICOXIB
     Indication: Product used for unknown indication
     Dosage: UNK
     Route: 065
  15. COSENTYX [Suspect]
     Active Substance: SECUKINUMAB
     Indication: Ankylosing spondylitis
     Dosage: 300 MG
     Route: 058
     Dates: start: 20211011
  16. COSENTYX [Suspect]
     Active Substance: SECUKINUMAB
     Dosage: 150 MILLIGRAM
     Route: 058
     Dates: start: 202109

REACTIONS (11)
  - Barrett^s oesophagus [Unknown]
  - Dyspepsia [Unknown]
  - Neck pain [Unknown]
  - Vitamin B12 deficiency [Unknown]
  - Regurgitation [Unknown]
  - Eructation [Unknown]
  - Oropharyngeal discomfort [Unknown]
  - Abdominal distension [Unknown]
  - Condition aggravated [Unknown]
  - Acne [Not Recovered/Not Resolved]
  - Arthralgia [Not Recovered/Not Resolved]

NARRATIVE: CASE EVENT DATE: 20211201
